FAERS Safety Report 6385289-4 (Version None)
Quarter: 2009Q4

REPORT INFORMATION
  Report Type: 
  Country: None (occurrence: None)
  Receive Date: 20091002
  Receipt Date: 20080808
  Transmission Date: 20100525
  Serious: No
  Sender: FDA-Public Use
  Company Number: US-ASTRAZENECA-2008UW16335

PATIENT
  Age: 60 Year
  Sex: Female
  Weight: 88.5 kg

DRUGS (4)
  1. ARIMIDEX [Suspect]
     Indication: BREAST CANCER RECURRENT
     Route: 048
     Dates: start: 20050101
  2. TOPROL-XL [Concomitant]
  3. COZAAR [Concomitant]
  4. NEXIUM [Concomitant]
     Route: 048

REACTIONS (3)
  - ARTHRALGIA [None]
  - BONE PAIN [None]
  - TRIGGER FINGER [None]
